FAERS Safety Report 5384682-6 (Version None)
Quarter: 2007Q3

REPORT INFORMATION
  Report Type: 
  Country: None (occurrence: None)
  Receive Date: 20070710
  Receipt Date: 20070503
  Transmission Date: 20080115
  Serious: Yes (Hospitalization)
  Sender: FDA-Public Use
  Company Number: 2007-01303

PATIENT
  Age: 62 Year
  Sex: Female

DRUGS (1)
  1. VELCADE [Suspect]
     Indication: MULTIPLE MYELOMA
     Dosage: 1.80 MG
     Dates: start: 20070130, end: 20070323

REACTIONS (5)
  - BACTERAEMIA [None]
  - BACTEROIDES INFECTION [None]
  - FEBRILE NEUTROPENIA [None]
  - HERPES ZOSTER [None]
  - PNEUMONIA [None]
